FAERS Safety Report 6690492-X (Version None)
Quarter: 2010Q2

REPORT INFORMATION
  Report Type: 
  Country: None (occurrence: None)
  Receive Date: 20100420
  Receipt Date: 20100420
  Transmission Date: 20101027
  Serious: Yes (Other)
  Sender: FDA-Public Use
  Company Number: None

PATIENT
  Age: 5 Year
  Sex: Female
  Weight: 20.4119 kg

DRUGS (1)
  1. SINGULAIR [Suspect]
     Indication: HYPERSENSITIVITY
     Dosage: 1 TABLET 1 A DAY PO
     Route: 048
     Dates: start: 20100414, end: 20100414

REACTIONS (9)
  - ABNORMAL BEHAVIOUR [None]
  - CRYING [None]
  - EYE SWELLING [None]
  - FEELING ABNORMAL [None]
  - OCULAR HYPERAEMIA [None]
  - PRURITUS [None]
  - RHINORRHOEA [None]
  - SNEEZING [None]
  - URTICARIA [None]
